FAERS Safety Report 20171386 (Version 1)
Quarter: 2021Q4

REPORT INFORMATION
  Report Type: Report from Study
  Country: US (occurrence: US)
  Receive Date: 20211210
  Receipt Date: 20211210
  Transmission Date: 20220303
  Serious: Yes (Other)
  Sender: FDA-Public Use
  Company Number: US-KOREA IPSEN Pharma-2021-30873

PATIENT
  Age: 80 Year
  Sex: Female

DRUGS (1)
  1. SOMATULINE DEPOT [Suspect]
     Active Substance: LANREOTIDE ACETATE
     Indication: Neuroendocrine tumour
     Dosage: 120 MG/0.5 ML
     Route: 058
     Dates: start: 202103

REACTIONS (6)
  - Spinal fracture [Recovering/Resolving]
  - Radiotherapy [Recovering/Resolving]
  - Middle ear effusion [Recovering/Resolving]
  - Lipids abnormal [Recovering/Resolving]
  - Blood chromogranin A increased [Recovering/Resolving]
  - Blood alkaline phosphatase increased [Recovering/Resolving]

NARRATIVE: CASE EVENT DATE: 20211101
